FAERS Safety Report 25290710 (Version 2)
Quarter: 2025Q2

REPORT INFORMATION
  Report Type: Spontaneous
  Country: US (occurrence: US)
  Receive Date: 20250510
  Receipt Date: 20250522
  Transmission Date: 20250716
  Serious: No
  Sender: SANOFI AVENTIS
  Company Number: US-SA-2025SA073926

PATIENT
  Sex: Male

DRUGS (12)
  1. KEVZARA [Suspect]
     Active Substance: SARILUMAB
     Indication: Rheumatoid arthritis
     Dosage: 200 MG, QOW
     Route: 058
  2. ISOSORBIDE [Concomitant]
     Active Substance: ISOSORBIDE
  3. GABAPENTIN [Concomitant]
     Active Substance: GABAPENTIN
  4. NOVOLOG [Concomitant]
     Active Substance: INSULIN ASPART
  5. JARDIANCE [Concomitant]
     Active Substance: EMPAGLIFLOZIN
  6. METHOTREXATE [Concomitant]
     Active Substance: METHOTREXATE
  7. VITAMIN B12 [Concomitant]
     Active Substance: CYANOCOBALAMIN
  8. FOLIC ACID [Concomitant]
     Active Substance: FOLIC ACID
  9. VITAMIN D3 [Concomitant]
     Active Substance: CHOLECALCIFEROL
  10. HYDROXYCHLOROQUINE [Concomitant]
     Active Substance: HYDROXYCHLOROQUINE
  11. CRESTOR [Concomitant]
     Active Substance: ROSUVASTATIN CALCIUM
  12. MOUNJARO [Concomitant]
     Active Substance: TIRZEPATIDE

REACTIONS (2)
  - Musculoskeletal discomfort [Recovered/Resolved]
  - Therapeutic product effect incomplete [Unknown]
